FAERS Safety Report 17109103 (Version 4)
Quarter: 2019Q4

REPORT INFORMATION
  Report Type: Report from Study
  Country: KR (occurrence: KR)
  Receive Date: 20191204
  Receipt Date: 20191218
  Transmission Date: 20200122
  Serious: Yes (Life-Threatening)
  Sender: FDA-Public Use
  Company Number: KR-ROCHE-2488032

PATIENT
  Age: 74 Year
  Sex: Male
  Weight: 51.8 kg

DRUGS (12)
  1. PENIRAMIN [Concomitant]
     Route: 042
     Dates: start: 20191125, end: 20191125
  2. NIRAPARIB [Suspect]
     Active Substance: NIRAPARIB
     Indication: TRANSITIONAL CELL CARCINOMA
     Dosage: DATE OF MOST RECENT DOSE OF NIRAPARIB: 24/NOV/2019
     Route: 048
     Dates: start: 20191017
  3. DUPHALAC EASY [Concomitant]
     Indication: CONSTIPATION
     Dosage: AS NEEDED
     Route: 048
     Dates: start: 201909
  4. PENIRAMIN [Concomitant]
     Route: 042
     Dates: start: 20191202, end: 20191202
  5. ATEZOLIZUMAB. [Suspect]
     Active Substance: ATEZOLIZUMAB
     Indication: TRANSITIONAL CELL CARCINOMA
     Dosage: DATE OF MOST RECENT DOSE OF ATEZOLIZUMAB: 06/NOV/2019
     Route: 042
     Dates: start: 20191017
  6. RED BLOOD CELLS [Concomitant]
     Active Substance: HUMAN RED BLOOD CELL
     Indication: ANAEMIA
     Dosage: 2 OTHER UNITS
     Route: 042
     Dates: start: 20191128, end: 20191128
  7. FOLIC ACID. [Concomitant]
     Active Substance: FOLIC ACID
     Indication: ANAEMIA
     Route: 048
     Dates: start: 20191205
  8. PLAVIX [Concomitant]
     Active Substance: CLOPIDOGREL BISULFATE
     Indication: ATRIAL FIBRILLATION
     Route: 048
     Dates: start: 201908, end: 20191027
  9. HARTMANDEX [Concomitant]
     Route: 042
     Dates: start: 20191125, end: 20191125
  10. ASPIRIN [ACETYLSALICYLIC ACID] [Concomitant]
     Active Substance: ASPIRIN
     Indication: ATRIAL FIBRILLATION
     Route: 048
     Dates: start: 20191028, end: 20191124
  11. PENIRAMIN [Concomitant]
     Route: 042
     Dates: start: 20191128, end: 20191128
  12. PYRIDOXINE [Concomitant]
     Active Substance: PYRIDOXINE
     Indication: ANAEMIA
     Route: 048
     Dates: start: 20191205

REACTIONS (1)
  - Platelet count decreased [Recovered/Resolved]

NARRATIVE: CASE EVENT DATE: 20191125
